FAERS Safety Report 16760565 (Version 1)
Quarter: 2019Q3

REPORT INFORMATION
  Report Type: Spontaneous
  Country: US (occurrence: US)
  Receive Date: 20190830
  Receipt Date: 20190830
  Transmission Date: 20191005
  Serious: Yes (Other)
  Sender: FDA-Public Use
  Company Number: US-GALDERMA-US19054202

PATIENT
  Age: 3 Decade
  Sex: Male

DRUGS (1)
  1. DOXYCYCLINE. [Suspect]
     Active Substance: DOXYCYCLINE
     Indication: MALARIA PROPHYLAXIS
     Dosage: 40 MG
     Route: 048

REACTIONS (5)
  - Intracranial pressure increased [Not Recovered/Not Resolved]
  - Optic disc disorder [Unknown]
  - Intentional product use issue [Recovered/Resolved]
  - Papilloedema [Not Recovered/Not Resolved]
  - Optic nerve disorder [Unknown]
